FAERS Safety Report 12807601 (Version 1)
Quarter: 2016Q4

REPORT INFORMATION
  Report Type: Spontaneous
  Country: US (occurrence: US)
  Receive Date: 20161004
  Receipt Date: 20161004
  Transmission Date: 20170207
  Serious: No
  Sender: FDA-Public Use
  Company Number: US-AMGEN-USASP2016000327

PATIENT
  Age: 77 Year
  Sex: Male

DRUGS (2)
  1. XGEVA [Suspect]
     Active Substance: DENOSUMAB
     Indication: PRODUCT USED FOR UNKNOWN INDICATION
     Dosage: UNK
     Route: 065
  2. XTANDI [Suspect]
     Active Substance: ENZALUTAMIDE
     Indication: PROSTATE CANCER
     Dosage: 160 MG, QD (40 MG X 4 CAPSULES)
     Route: 048
     Dates: start: 20150825, end: 20151019

REACTIONS (3)
  - Decreased appetite [Recovered/Resolved]
  - Hypoaesthesia [Recovering/Resolving]
  - Pain in jaw [Recovered/Resolved]

NARRATIVE: CASE EVENT DATE: 20150825
